FAERS Safety Report 17782486 (Version 1)
Quarter: 2020Q2

REPORT INFORMATION
  Report Type: Spontaneous
  Country: DE (occurrence: DE)
  Receive Date: 20200514
  Receipt Date: 20200514
  Transmission Date: 20200714
  Serious: Yes (Other)
  Sender: FDA-Public Use
  Company Number: DE-PFIZER INC-2020189639

PATIENT
  Age: 63 Year
  Sex: Female

DRUGS (2)
  1. POLYMETHYL METHACRYLATE [Concomitant]
     Dosage: UNK (7.0 MM POLY(METHYL METHACRYLATE) IOL)
  2. RAMIPRIL. [Suspect]
     Active Substance: RAMIPRIL
     Indication: HYPERTENSION
     Dosage: 10 MG, DAILY

REACTIONS (1)
  - Maculopathy [Unknown]
